FAERS Safety Report 8105631-3 (Version None)
Quarter: 2012Q1

REPORT INFORMATION
  Report Type: 
  Country: None (occurrence: None)
  Receive Date: 20120201
  Receipt Date: 20120126
  Transmission Date: 20120608
  Serious: Yes (Hospitalization, Other)
  Sender: FDA-Public Use
  Company Number: BR-ABBOTT-12P-020-0898804-00

PATIENT
  Sex: Male
  Weight: 68 kg

DRUGS (3)
  1. HUMIRA [Suspect]
     Route: 058
  2. HUMIRA [Suspect]
     Indication: CROHN'S DISEASE
     Dosage: INDUCTION DOSE
     Route: 058
     Dates: start: 20090825
  3. HUMIRA [Suspect]
     Dosage: INDUCTION DOSE
     Route: 058

REACTIONS (4)
  - DRUG INEFFECTIVE [None]
  - CROHN'S DISEASE [None]
  - INTESTINAL RESECTION [None]
  - OESOPHAGEAL FISTULA [None]
